FAERS Safety Report 21608806 (Version 4)
Quarter: 2022Q4

REPORT INFORMATION
  Report Type: Spontaneous
  Country: US (occurrence: US)
  Receive Date: 20221117
  Receipt Date: 20221222
  Transmission Date: 20230113
  Serious: No
  Sender: FDA-Public Use
  Company Number: US-PFIZER INC-202201307651

PATIENT
  Age: 75 Year
  Sex: Female

DRUGS (1)
  1. PAXLOVID [Suspect]
     Active Substance: NIRMATRELVIR\RITONAVIR
     Indication: COVID-19 treatment
     Dosage: UNK

REACTIONS (7)
  - Diarrhoea [Unknown]
  - Dysgeusia [Unknown]
  - Cough [Not Recovered/Not Resolved]
  - Rhinorrhoea [Unknown]
  - Oropharyngeal discomfort [Unknown]
  - Malaise [Unknown]
  - Sinus disorder [Unknown]

NARRATIVE: CASE EVENT DATE: 20221101
